FAERS Safety Report 7764605-2 (Version None)
Quarter: 2011Q3

REPORT INFORMATION
  Report Type: 
  Country: None (occurrence: None)
  Receive Date: 20110921
  Receipt Date: 20110906
  Transmission Date: 20111222
  Serious: Yes (Other)
  Sender: FDA-Public Use
  Company Number: PHHY2011BR80544

PATIENT
  Age: 58 Year
  Sex: Female
  Weight: 88 kg

DRUGS (1)
  1. EXFORGE [Suspect]
     Indication: HYPERTENSION
     Dosage: 320/5MG

REACTIONS (9)
  - SKIN LESION [None]
  - THYROID DISORDER [None]
  - ONYCHOMYCOSIS [None]
  - BLOOD PRESSURE INCREASED [None]
  - BLOOD GLUCOSE INCREASED [None]
  - PARONYCHIA [None]
  - HYPERTRIGLYCERIDAEMIA [None]
  - GLYCOSYLATED HAEMOGLOBIN INCREASED [None]
  - DIABETIC DERMOPATHY [None]
